FAERS Safety Report 8574887-5 (Version None)
Quarter: 2012Q3

REPORT INFORMATION
  Report Type: 
  Country: None (occurrence: None)
  Receive Date: 20120807
  Receipt Date: 20120719
  Transmission Date: 20120928
  Serious: No
  Sender: FDA-Public Use
  Company Number: US-009507513-1207USA009160

PATIENT

DRUGS (4)
  1. PEG-INTRON [Suspect]
     Dosage: 150 MCG
  2. ACETAMINOPHEN [Concomitant]
  3. VICTRELIS [Suspect]
     Dosage: 800 MG, TID
     Route: 048
  4. RIBAVIRIN [Suspect]
     Dosage: 1200/DAY

REACTIONS (1)
  - PHARYNGITIS STREPTOCOCCAL [None]
